FAERS Safety Report 21422214 (Version 1)
Quarter: 2022Q4

REPORT INFORMATION
  Report Type: Spontaneous
  Country: DE (occurrence: DE)
  Receive Date: 20221007
  Receipt Date: 20221007
  Transmission Date: 20230112
  Serious: Yes (Hospitalization)
  Sender: FDA-Public Use
  Company Number: None

PATIENT
  Age: 60 Year
  Sex: Female
  Weight: 75 kg

DRUGS (13)
  1. BECLOMETHASONE\FORMOTEROL [Concomitant]
     Active Substance: BECLOMETHASONE\FORMOTEROL
     Dosage: 100|6 ?G, 2-0-2-0, DOSIERAEROSOL ()
     Route: 050
  2. EZETIMIBE [Concomitant]
     Active Substance: EZETIMIBE
     Dosage: 10 MG, 1-0-0-0, TABLETTEN ()
     Route: 050
  3. ALFACALCIDOL [Concomitant]
     Active Substance: ALFACALCIDOL
     Dosage: 0.25 ?G, 0-0-1-0, KAPSELN ()
     Route: 050
  4. CHOLECALCIFEROL [Concomitant]
     Active Substance: CHOLECALCIFEROL
     Dosage: 20000 IE, NACH SCHEMA, KAPSELN ()
     Route: 050
  5. GABAPENTIN [Concomitant]
     Active Substance: GABAPENTIN
     Dosage: 100 MG, 1-0-0-2, KAPSELN ()
     Route: 050
  6. PIPERACILLIN SODIUM\TAZOBACTAM SODIUM [Suspect]
     Active Substance: PIPERACILLIN SODIUM\TAZOBACTAM SODIUM
     Dosage: 4|0.5 G, NACH SCHEMA, INJEKTIONS-/INFUSIONSL?SUNG ()
     Route: 050
  7. CINACALCET [Suspect]
     Active Substance: CINACALCET
     Dosage: 90 MG, 0-0-1-0, TABLETTEN ()
     Route: 050
  8. TORSEMIDE [Suspect]
     Active Substance: TORSEMIDE
     Dosage: 50 MG, NACH SCHEMA, TABLETTEN ()
     Route: 050
  9. DALTEPARIN [Concomitant]
     Active Substance: DALTEPARIN
     Dosage: 2500 IE, 0-0-1-0, FERTIGSPRITZEN ()
     Route: 050
  10. ALBUTEROL [Concomitant]
     Active Substance: ALBUTEROL
     Dosage: 0.1 MG, BEDARF, DOSIERAEROSOL ()
     Route: 050
  11. Eisen(III) [Concomitant]
     Dosage: 500 MG, 1-1-1-0, TABLETTEN ()
     Route: 050
  12. PANTOPRAZOLE SODIUM [Concomitant]
     Active Substance: PANTOPRAZOLE SODIUM
     Dosage: 40 MG, 1-0-0-0, RETARD-TABLETTEN ()
     Route: 050
  13. ROSUVASTATIN [Concomitant]
     Active Substance: ROSUVASTATIN
     Dosage: 10 MG, 0-0-1-0, TABLETTEN ()
     Route: 050

REACTIONS (4)
  - Diarrhoea [Unknown]
  - Nausea [Unknown]
  - Ileus [Unknown]
  - Pain [Unknown]
